FAERS Safety Report 11797242 (Version 1)
Quarter: 2015Q4

REPORT INFORMATION
  Report Type: Spontaneous
  Country: FR (occurrence: FR)
  Receive Date: 20151203
  Receipt Date: 20151203
  Transmission Date: 20160305
  Serious: Yes (Hospitalization)
  Sender: FDA-Public Use
  Company Number: FR-009507513-1511FRA014509

PATIENT
  Age: 82 Year
  Sex: Female
  Weight: 46 kg

DRUGS (10)
  1. FIDAXOMICIN [Suspect]
     Active Substance: FIDAXOMICIN
     Dosage: UNK, TWICE DAILY
     Route: 048
     Dates: start: 20150918, end: 20150930
  2. ADROVANCE [Concomitant]
     Active Substance: ALENDRONATE SODIUM\CHOLECALCIFEROL
     Dosage: 70 MG, QW
  3. SERESTA [Concomitant]
     Active Substance: OXAZEPAM
     Dosage: 0.5 TABLET, UNK
     Route: 048
  4. PYRIDOXINE [Concomitant]
     Active Substance: PYRIDOXINE
     Dosage: UNK, TID
  5. THIAMINE. [Concomitant]
     Active Substance: THIAMINE
  6. ENTOCORT [Concomitant]
     Active Substance: BUDESONIDE
     Dosage: 2 CAPSULES IN THE MORNING
     Route: 048
     Dates: start: 20150812, end: 2015
  7. KARDEGIC [Concomitant]
     Active Substance: ASPIRIN LYSINE
  8. LERCAN [Concomitant]
     Active Substance: LERCANIDIPINE
  9. PAROXETINE [Concomitant]
     Active Substance: PAROXETINE\PAROXETINE HYDROCHLORIDE
     Dosage: 0.5 TABLET, QD
     Route: 048
  10. PERINDOPRIL [Concomitant]
     Active Substance: PERINDOPRIL

REACTIONS (2)
  - Diarrhoea [Unknown]
  - Drug ineffective [Unknown]

NARRATIVE: CASE EVENT DATE: 201509
